FAERS Safety Report 7995711-5 (Version None)
Quarter: 2011Q4

REPORT INFORMATION
  Report Type: 
  Country: None (occurrence: None)
  Receive Date: 20111220
  Receipt Date: 20111217
  Transmission Date: 20120403
  Serious: Yes (Other)
  Sender: FDA-Public Use
  Company Number: US-PFIZER INC-2011307014

PATIENT
  Sex: Female
  Weight: 118 kg

DRUGS (5)
  1. LEXAPRO [Concomitant]
     Dosage: 10 MG, UNK
  2. ROBITUSSIN PEAK COLD NIGHTTIME MULTI-SYMPTOM COLD [Suspect]
     Indication: COUGH
     Dosage: UNK
     Route: 048
     Dates: start: 20111216, end: 20111217
  3. LEVETIRACETAM [Concomitant]
     Indication: CONVULSION
     Dosage: 500 MG, UNK
  4. CLORAZEPATE DIPOTASSIUM [Concomitant]
     Dosage: UNK
  5. ROBITUSSIN PEAK COLD NIGHTTIME MULTI-SYMPTOM COLD [Suspect]
     Indication: RESPIRATORY DISORDER

REACTIONS (4)
  - FEELING ABNORMAL [None]
  - DYSKINESIA [None]
  - VISION BLURRED [None]
  - CONVULSION [None]
